FAERS Safety Report 5006169-2 (Version None)
Quarter: 2006Q1

REPORT INFORMATION
  Report Type: 
  Country: None (occurrence: None)
  Receive Date: 20060328
  Receipt Date: 20050726
  Transmission Date: 20060701
  Serious: Yes (Life-Threatening, Hospitalization)
  Sender: FDA-Public Use
  Company Number: K200501004

PATIENT
  Age: 71 Year
  Sex: Female
  Weight: 59 kg

DRUGS (6)
  1. ALTACE [Suspect]
     Indication: HYPERTENSION
     Dosage: 2.5 MG, QD, ORAL
     Route: 048
     Dates: start: 20050101, end: 20050725
  2. CYCLOBENAZAPRINE (CYCLOBENZAPRINE) [Concomitant]
  3. DIGOXIN [Concomitant]
  4. KLOR-CON [Concomitant]
  5. FUROSEMIDE [Concomitant]
  6. CENTRUM SILVER (ZINC, VITAMIN B NOS, TOCOPHERYL ACETATE, RETINOL, MINE [Concomitant]

REACTIONS (6)
  - OEDEMA MOUTH [None]
  - PAIN IN JAW [None]
  - PHARYNGEAL OEDEMA [None]
  - RESPIRATORY DISTRESS [None]
  - SWOLLEN TONGUE [None]
  - THROAT TIGHTNESS [None]
